FAERS Safety Report 4787710-1 (Version None)
Quarter: 2005Q3

REPORT INFORMATION
  Report Type: 
  Country: None (occurrence: None)
  Receive Date: 20050914
  Receipt Date: 20050623
  Transmission Date: 20060218
  Serious: Yes (Other)
  Sender: FDA-Public Use
  Company Number: 408797

PATIENT

DRUGS (1)
  1. BONIVA [Suspect]
     Dosage: 150 MG DAILY ORAL
     Route: 048
     Dates: start: 20050615

REACTIONS (2)
  - NO ADVERSE EFFECT [None]
  - OVERDOSE [None]
